FAERS Safety Report 4827629-0 (Version None)
Quarter: 2005Q4

REPORT INFORMATION
  Report Type: 
  Country: None (occurrence: None)
  Receive Date: 20051110
  Receipt Date: 20051027
  Transmission Date: 20060501
  Serious: Yes (Hospitalization, Other)
  Sender: FDA-Public Use
  Company Number: 2005-DE-04497GD

PATIENT
  Age: 33 Year
  Sex: Male

DRUGS (5)
  1. AZATHIOPRINE [Suspect]
     Indication: DERMATOMYOSITIS
     Dosage: 100 MG
     Dates: start: 19980501
  2. AZATHIOPRINE [Suspect]
     Indication: SYSTEMIC LUPUS ERYTHEMATOSUS
     Dosage: 100 MG
     Dates: start: 19980501
  3. TRIMETHOPRIM-SULFAMETHOXAZOLE (INFECTRIN /00566501/) [Suspect]
     Indication: PNEUMOCYSTIS JIROVECI PNEUMONIA
     Dosage: 5.2 G (, EVERY 6 H), IV
     Route: 042
  4. PREDNISONE [Suspect]
     Indication: LUPUS NEPHRITIS
     Dosage: SEE IMAGE
     Dates: start: 19980601
  5. PREDNISONE [Suspect]
     Indication: SYSTEMIC LUPUS ERYTHEMATOSUS
     Dosage: SEE IMAGE
     Dates: start: 19980601

REACTIONS (5)
  - GENERAL PHYSICAL HEALTH DETERIORATION [None]
  - PNEUMOCYSTIS JIROVECI PNEUMONIA [None]
  - STAPHYLOCOCCAL INFECTION [None]
  - SUBCUTANEOUS ABSCESS [None]
  - THERAPY NON-RESPONDER [None]
